FAERS Safety Report 14102900 (Version 1)
Quarter: 2017Q4

REPORT INFORMATION
  Report Type: Spontaneous
  Country: US (occurrence: US)
  Receive Date: 20171018
  Receipt Date: 20171018
  Transmission Date: 20180321
  Serious: No
  Sender: FDA-Public Use
  Company Number: US-PERRIGO-17US001772

PATIENT
  Age: 67 Year
  Sex: Male
  Weight: 131.52 kg

DRUGS (2)
  1. CLINDAMYCIN                        /00166003/ [Concomitant]
     Indication: EYE INFECTION BACTERIAL
     Dosage: UNKNOWN, UNKNOWN
     Route: 048
     Dates: start: 20170216
  2. ERYTHROMYCIN. [Suspect]
     Active Substance: ERYTHROMYCIN
     Indication: EYE INFECTION BACTERIAL
     Dosage: ONE RIBBON, SINGLE
     Route: 047
     Dates: start: 20170216, end: 20170216

REACTIONS (2)
  - Eye irritation [Recovered/Resolved]
  - Ocular hyperaemia [Recovered/Resolved]

NARRATIVE: CASE EVENT DATE: 20170216
